FAERS Safety Report 14126164 (Version 1)
Quarter: 2017Q4

REPORT INFORMATION
  Report Type: Spontaneous
  Country: US (occurrence: US)
  Receive Date: 20171025
  Receipt Date: 20171025
  Transmission Date: 20180321
  Serious: Yes (Other)
  Sender: FDA-Public Use
  Company Number: US-PFIZER INC-2017455122

PATIENT
  Age: 25 Year
  Sex: Male

DRUGS (1)
  1. ZOLOFT [Suspect]
     Active Substance: SERTRALINE HYDROCHLORIDE
     Indication: DEPRESSION
     Dosage: UNK
     Dates: start: 20151015

REACTIONS (3)
  - Feeling abnormal [Recovering/Resolving]
  - Abnormal behaviour [Recovering/Resolving]
  - Drug dependence [Recovering/Resolving]

NARRATIVE: CASE EVENT DATE: 201708
